FAERS Safety Report 17097902 (Version 1)
Quarter: 2019Q4

REPORT INFORMATION
  Report Type: Spontaneous
  Country: US (occurrence: US)
  Receive Date: 20191105
  Receipt Date: 20191105
  Transmission Date: 20200122
  Serious: Yes (Other)
  Sender: FDA-Public Use
  Company Number: None

PATIENT
  Age: 35 Year
  Sex: Female

DRUGS (1)
  1. BOSENTAN 62.5MG ROXANE [Suspect]
     Active Substance: BOSENTAN
     Indication: PULMONARY ARTERIAL HYPERTENSION
     Route: 048
     Dates: start: 20191007

REACTIONS (3)
  - Nausea [None]
  - Hyperhidrosis [None]
  - Treatment noncompliance [None]

NARRATIVE: CASE EVENT DATE: 20191103
